FAERS Safety Report 7496932-0 (Version None)
Quarter: 2011Q2

REPORT INFORMATION
  Report Type: 
  Country: None (occurrence: None)
  Receive Date: 20110523
  Receipt Date: 20110511
  Transmission Date: 20111010
  Serious: Yes (Hospitalization, Other)
  Sender: FDA-Public Use
  Company Number: US-MERCK-1005USA00487

PATIENT
  Age: 64 Year
  Sex: Female
  Weight: 74 kg

DRUGS (7)
  1. VITAMINS (UNSPECIFIED) [Concomitant]
     Route: 065
  2. CALCIUM (UNSPECIFIED) [Concomitant]
     Route: 065
  3. FOSAMAX [Suspect]
     Indication: OSTEOPOROSIS
     Route: 048
     Dates: start: 20000626, end: 20020101
  4. ASPIRIN [Concomitant]
     Route: 065
  5. FOSAMAX [Suspect]
     Route: 048
     Dates: start: 20020923, end: 20080101
  6. ALENDRONATE SODIUM [Suspect]
     Route: 048
     Dates: start: 20070913, end: 20090101
  7. VITAMIN E [Concomitant]
     Route: 065

REACTIONS (28)
  - BLOOD PRESSURE INCREASED [None]
  - LIMB ASYMMETRY [None]
  - HIATUS HERNIA [None]
  - PAIN IN EXTREMITY [None]
  - AORTIC DISORDER [None]
  - BONE LOSS [None]
  - TOOTH DISORDER [None]
  - NODULE [None]
  - ORAL PAIN [None]
  - ABDOMINAL DISCOMFORT [None]
  - TOOTH FRACTURE [None]
  - KNEE DEFORMITY [None]
  - ADVERSE DRUG REACTION [None]
  - FALL [None]
  - INJURY [None]
  - ANKLE FRACTURE [None]
  - MIGRAINE [None]
  - FEMUR FRACTURE [None]
  - GAIT DISTURBANCE [None]
  - DENTAL NECROSIS [None]
  - LOW TURNOVER OSTEOPATHY [None]
  - CYST [None]
  - DEPRESSION [None]
  - ATELECTASIS [None]
  - ANXIETY [None]
  - STRESS [None]
  - DENTAL CARIES [None]
  - RADIUS FRACTURE [None]
